FAERS Safety Report 10517673 (Version 1)
Quarter: 2014Q4

REPORT INFORMATION
  Report Type: Report from Study
  Country: BR (occurrence: BR)
  Receive Date: 20141014
  Receipt Date: 20141014
  Transmission Date: 20150528
  Serious: Yes (Hospitalization, Other)
  Sender: FDA-Public Use
  Company Number: PHHY2014BR134098

PATIENT
  Age: 89 Year
  Sex: Female
  Weight: 75 kg

DRUGS (6)
  1. EXELON PATCH [Suspect]
     Active Substance: RIVASTIGMINE
     Indication: DEMENTIA ALZHEIMER^S TYPE
     Dosage: 9.5 MG, DAILY (18MG/10CM2)
     Route: 062
     Dates: start: 201408, end: 20140926
  2. MEMANTINE [Suspect]
     Active Substance: MEMANTINE
     Indication: DEMENTIA ALZHEIMER^S TYPE
     Dosage: 1 DF, BID (ONE IN THE MORNING AND ONE IN THE AFTERNOON)
  3. AMLODIPINE [Suspect]
     Active Substance: AMLODIPINE BESYLATE
     Indication: HYPERTENSION
     Dosage: 1 DF, Q12H
     Route: 065
  4. EXELON [Suspect]
     Active Substance: RIVASTIGMINE TARTRATE
     Indication: DEMENTIA ALZHEIMER^S TYPE
     Dosage: 1 DF, Q12H
     Route: 065
     Dates: start: 20140630, end: 201407
  5. VALSARTAN. [Suspect]
     Active Substance: VALSARTAN
     Indication: HYPERTENSION
     Dosage: 1 DF, Q12H
     Route: 065
  6. CARDIZEM [Suspect]
     Active Substance: DILTIAZEM HYDROCHLORIDE
     Indication: PRODUCT USED FOR UNKNOWN INDICATION
     Dosage: UNK UKN, UNK
     Route: 065

REACTIONS (12)
  - Arrhythmia [Unknown]
  - Hypertension [Unknown]
  - Renal disorder [Unknown]
  - Urinary tract infection [Unknown]
  - Anuria [Unknown]
  - Dementia [Unknown]
  - Oxygen saturation abnormal [Unknown]
  - Agitation [Unknown]
  - Insomnia [Unknown]
  - Blood pressure fluctuation [Unknown]
  - Generalised oedema [Unknown]
  - Aggression [Unknown]

NARRATIVE: CASE EVENT DATE: 20140906
